FAERS Safety Report 8010929-3 (Version None)
Quarter: 2011Q4

REPORT INFORMATION
  Report Type: 
  Country: None (occurrence: None)
  Receive Date: 20111228
  Receipt Date: 20111216
  Transmission Date: 20120403
  Serious: Yes (Other)
  Sender: FDA-Public Use
  Company Number: GR-BAYER-2010-000633

PATIENT
  Age: 28 Year
  Sex: Female

DRUGS (1)
  1. CLOTRIMAZOLE [Suspect]
     Indication: VAGINAL INFECTION
     Dosage: UNK
     Route: 067
     Dates: start: 20101121, end: 20101125

REACTIONS (3)
  - CAESAREAN SECTION [None]
  - NO ADVERSE EVENT [None]
  - TREMOR [None]
